FAERS Safety Report 4277561-9 (Version None)
Quarter: 2004Q1

REPORT INFORMATION
  Report Type: 
  Country: None (occurrence: None)
  Receive Date: 20040121
  Receipt Date: 20040121
  Transmission Date: 20041129
  Serious: No
  Sender: FDA-Public Use
  Company Number: None

PATIENT
  Age: 75 Year
  Sex: Male
  Weight: 71.7 kg

DRUGS (9)
  1. REMICADE [Suspect]
     Indication: ARTHRITIS
     Dosage: 240MG, 240MG UD, INTRAVEN
     Route: 042
  2. METHOTREXATE NA [Concomitant]
  3. RANITIDINE HCL [Concomitant]
  4. TRIAMCINOLONE ACETONIDE [Concomitant]
  5. SULFASALAZINE [Concomitant]
  6. HYDROXYZINE HCL [Concomitant]
  7. ALENDRONATE SODIUM [Concomitant]
  8. CALCIUM 500MG/ VITAMIN D 200 [Concomitant]
  9. FOLIC ACID [Concomitant]

REACTIONS (1)
  - RASH [None]
